FAERS Safety Report 5317927-9 (Version None)
Quarter: 2007Q2

REPORT INFORMATION
  Report Type: 
  Country: None (occurrence: None)
  Receive Date: 20070507
  Receipt Date: 20070502
  Transmission Date: 20071010
  Serious: Yes (Hospitalization)
  Sender: FDA-Public Use
  Company Number: D0053151A

PATIENT
  Age: 62 Year
  Sex: Female

DRUGS (1)
  1. LAMOTRIGINE (HEXAL AG) [Suspect]
     Dosage: 325MG PER DAY
     Route: 048

REACTIONS (3)
  - CHOKING [None]
  - DYSPNOEA [None]
  - TONGUE DISORDER [None]
